FAERS Safety Report 16056339 (Version 1)
Quarter: 2019Q1

REPORT INFORMATION
  Report Type: Spontaneous
  Country: US (occurrence: US)
  Receive Date: 20190311
  Receipt Date: 20190311
  Transmission Date: 20190418
  Serious: No
  Sender: FDA-Public Use
  Company Number: US-LEO PHARMA-317198

PATIENT
  Sex: Female

DRUGS (1)
  1. PICATO [Suspect]
     Active Substance: INGENOL MEBUTATE
     Indication: PRODUCT USED FOR UNKNOWN INDICATION
     Route: 061

REACTIONS (4)
  - Periorbital swelling [Not Recovered/Not Resolved]
  - Scab [Not Recovered/Not Resolved]
  - Application site scab [Not Recovered/Not Resolved]
  - Incorrect product administration duration [Unknown]
